FAERS Safety Report 8295582-6 (Version None)
Quarter: 2012Q2

REPORT INFORMATION
  Report Type: 
  Country: None (occurrence: None)
  Receive Date: 20120413
  Receipt Date: 20120402
  Transmission Date: 20120825
  Serious: Yes (Other)
  Sender: FDA-Public Use
  Company Number: 2012P1011891

PATIENT
  Age: 22 Year
  Sex: Female

DRUGS (7)
  1. RISPERIDONE [Suspect]
     Indication: SUICIDAL IDEATION
     Dosage: 6 MG
  2. RISPERIDONE [Suspect]
     Indication: DEPRESSION
     Dosage: 6 MG
  3. DIAZEPAM [Suspect]
     Indication: DEPRESSION
     Dosage: 20 MG
  4. DIAZEPAM [Suspect]
     Indication: SUICIDAL IDEATION
     Dosage: 20 MG
  5. BIPERIDEN HYDROCHLORIDE TAB [Concomitant]
  6. PREGABALIN [Concomitant]
  7. PALIPERIDONE [Suspect]
     Indication: SCHIZOPHRENIA
     Dosage: 12 MG;QD 18 MG;QD

REACTIONS (10)
  - GALACTORRHOEA [None]
  - TIC [None]
  - SOMNOLENCE [None]
  - DEPRESSION [None]
  - SUICIDAL IDEATION [None]
  - PSYCHOTIC DISORDER [None]
  - COPROLALIA [None]
  - DYSPHAGIA [None]
  - FATIGUE [None]
  - EMOTIONAL DISTRESS [None]
